FAERS Safety Report 23249503 (Version 3)
Quarter: 2024Q1

REPORT INFORMATION
  Report Type: Report from Study
  Country: CN (occurrence: CN)
  Receive Date: 20231201
  Receipt Date: 20240119
  Transmission Date: 20240409
  Serious: Yes (Life-Threatening, Hospitalization)
  Sender: FDA-Public Use
  Company Number: CN-JNJFOC-20231175970

PATIENT
  Age: 32 Year
  Sex: Male
  Weight: 75.8 kg

DRUGS (4)
  1. DARATUMUMAB [Suspect]
     Active Substance: DARATUMUMAB
     Indication: Product used for unknown indication
     Dosage: SINGLE DOSE
     Route: 041
     Dates: start: 20231121, end: 20231121
  2. METHYLPREDNISOLONE SODIUM SUCCINATE [Suspect]
     Active Substance: METHYLPREDNISOLONE SODIUM SUCCINATE
     Indication: Prophylaxis
     Route: 041
     Dates: start: 20231121, end: 20231121
  3. STERILE WATER [Concomitant]
     Active Substance: WATER
     Indication: Prophylaxis
     Route: 041
     Dates: start: 20231121, end: 20231121
  4. DIPHENHYDRAMINE HYDROCHLORIDE [Concomitant]
     Active Substance: DIPHENHYDRAMINE HYDROCHLORIDE
     Indication: Prophylaxis
     Dosage: 2
     Route: 048
     Dates: start: 20231121

REACTIONS (1)
  - Hypokalaemia [Recovered/Resolved]

NARRATIVE: CASE EVENT DATE: 20231121
